FAERS Safety Report 23942459 (Version 7)
Quarter: 2025Q1

REPORT INFORMATION
  Report Type: Spontaneous
  Country: US (occurrence: US)
  Receive Date: 20240605
  Receipt Date: 20250226
  Transmission Date: 20250408
  Serious: Yes (Other)
  Sender: PFIZER
  Company Number: US-PFIZER INC-PV202400073715

PATIENT
  Age: 40 Year
  Sex: Female
  Weight: 111 kg

DRUGS (12)
  1. XELJANZ [Suspect]
     Active Substance: TOFACITINIB CITRATE
     Indication: Colitis ulcerative
     Dosage: 5 MG, 2X/DAY
     Route: 048
     Dates: start: 2023
  2. XELJANZ [Suspect]
     Active Substance: TOFACITINIB CITRATE
     Dosage: 5 MG, 2X/DAY
     Route: 048
     Dates: start: 2023
  3. XELJANZ [Suspect]
     Active Substance: TOFACITINIB CITRATE
     Dosage: 10MG TWICE DAILY
     Route: 048
     Dates: start: 2023
  4. XELJANZ [Suspect]
     Active Substance: TOFACITINIB CITRATE
     Dosage: 5MG TWICE DAILY
     Route: 048
     Dates: start: 2023
  5. CYMBALTA [Concomitant]
     Active Substance: DULOXETINE HYDROCHLORIDE
     Dosage: 60 MG, DAILY
  6. METFORMIN [Concomitant]
     Active Substance: METFORMIN HYDROCHLORIDE
     Dosage: 500 MG, 2X/DAY
  7. TOPAMAX [Concomitant]
     Active Substance: TOPIRAMATE
     Dosage: 50 MG, DAILY
  8. OMEPRAZOLE [Concomitant]
     Active Substance: OMEPRAZOLE
  9. TRULICITY [Concomitant]
     Active Substance: DULAGLUTIDE
  10. SYNTHROID [Concomitant]
     Active Substance: LEVOTHYROXINE SODIUM
  11. LASIX [Concomitant]
     Active Substance: FUROSEMIDE
  12. CLARITIN [Concomitant]
     Active Substance: LORATADINE

REACTIONS (12)
  - Rectal haemorrhage [Recovered/Resolved]
  - Condition aggravated [Recovered/Resolved]
  - Haemorrhoids [Recovered/Resolved]
  - Intentional dose omission [Recovered/Resolved]
  - Nausea [Recovered/Resolved]
  - Diarrhoea [Recovered/Resolved]
  - Nasopharyngitis [Recovered/Resolved]
  - Sinus congestion [Recovered/Resolved]
  - Migraine [Recovered/Resolved]
  - Postural orthostatic tachycardia syndrome [Unknown]
  - Brain fog [Recovered/Resolved]
  - Gluten sensitivity [Unknown]

NARRATIVE: CASE EVENT DATE: 20230101
